FAERS Safety Report 14563401 (Version 1)
Quarter: 2018Q1

REPORT INFORMATION
  Report Type: Spontaneous
  Country: US (occurrence: US)
  Receive Date: 20180222
  Receipt Date: 20180222
  Transmission Date: 20180509
  Serious: No
  Sender: FDA-Public Use
  Company Number: US-GLAXOSMITHKLINE-US2018024737

PATIENT
  Age: 80 Year
  Sex: Female

DRUGS (1)
  1. FLONASE SENSIMIST ALLERGY RELIEF [Suspect]
     Active Substance: FLUTICASONE FUROATE
     Indication: HYPERSENSITIVITY
     Dosage: TWICE A DAY AND 1 SPRAY IN EACH NOSTRIL

REACTIONS (3)
  - Throat irritation [Unknown]
  - Inappropriate schedule of drug administration [Unknown]
  - Underdose [Unknown]
